FAERS Safety Report 5616127-2 (Version None)
Quarter: 2008Q1

REPORT INFORMATION
  Report Type: 
  Country: None (occurrence: None)
  Receive Date: 20080206
  Receipt Date: 20080125
  Transmission Date: 20080703
  Serious: Yes (Other)
  Sender: FDA-Public Use
  Company Number: US-PFIZER INC-2008008052

PATIENT
  Sex: Female

DRUGS (11)
  1. DILANTIN [Suspect]
     Indication: EPILEPSY
  2. DILANTIN [Suspect]
     Indication: GRAND MAL CONVULSION
  3. DILANTIN [Suspect]
     Indication: EPILEPSY
  4. PHENYTOIN SODIUM [Suspect]
     Indication: EPILEPSY
  5. PRIMIDONE [Concomitant]
  6. LEVOTHYROXINE SODIUM [Concomitant]
  7. ACETYLSALICYLIC ACID SRT [Concomitant]
  8. VITAMIN CAP [Concomitant]
  9. LOVASTATIN [Concomitant]
  10. TRIAMTERENE AND HYDROCHLOROTHIAZIDE [Concomitant]
  11. PERCOGESIC [Concomitant]

REACTIONS (11)
  - ARTHRITIS [None]
  - CONVULSION [None]
  - DYSPHAGIA [None]
  - FOOT FRACTURE [None]
  - GASTROINTESTINAL SOUNDS ABNORMAL [None]
  - HEADACHE [None]
  - HYPERSENSITIVITY [None]
  - INSOMNIA [None]
  - SWELLING FACE [None]
  - THROMBOSIS [None]
  - WEIGHT DECREASED [None]
